FAERS Safety Report 21199255 (Version 1)
Quarter: 2022Q3

REPORT INFORMATION
  Report Type: Spontaneous
  Country: FR (occurrence: FR)
  Receive Date: 20220811
  Receipt Date: 20220811
  Transmission Date: 20221027
  Serious: Yes (Life-Threatening)
  Sender: FDA-Public Use
  Company Number: None

PATIENT
  Age: 45 Year
  Sex: Female
  Weight: 76 kg

DRUGS (7)
  1. GAVRETO [Suspect]
     Active Substance: PRALSETINIB
     Indication: Bronchial carcinoma
     Route: 048
     Dates: start: 20220412, end: 20220713
  2. RITUXIMAB [Suspect]
     Active Substance: RITUXIMAB
     Indication: Neuromyelitis optica spectrum disorder
     Dosage: 2 COURSES IN TOTAL?1G ON 06/08/2021 AND 1G ON 28/4/2021
     Route: 065
     Dates: start: 20210806, end: 20220428
  3. LAMOTRIGINE [Concomitant]
     Active Substance: LAMOTRIGINE
  4. FERROUS SULFATE [Concomitant]
     Active Substance: FERROUS SULFATE
  5. BACLOFEN [Concomitant]
     Active Substance: BACLOFEN
  6. ESCITALOPRAM [Concomitant]
     Active Substance: ESCITALOPRAM OXALATE
  7. PANTOPRAZOLE [Concomitant]
     Active Substance: PANTOPRAZOLE

REACTIONS (1)
  - Pneumocystis jirovecii pneumonia [Recovering/Resolving]

NARRATIVE: CASE EVENT DATE: 20220713
